FAERS Safety Report 20093789 (Version 1)
Quarter: 2021Q4

REPORT INFORMATION
  Report Type: Spontaneous
  Country: US (occurrence: None)
  Receive Date: 20211119
  Receipt Date: 20211119
  Transmission Date: 20220303
  Serious: Yes (Hospitalization)
  Sender: FDA-Public Use
  Company Number: None

PATIENT
  Age: 63 Year
  Sex: Female

DRUGS (5)
  1. GILENYA [Suspect]
     Active Substance: FINGOLIMOD HYDROCHLORIDE
     Indication: Multiple sclerosis
     Dosage: FREQUENCY : DAILY;?
     Route: 048
     Dates: start: 20180213
  2. CALCIUM [Concomitant]
     Active Substance: CALCIUM
  3. VITAMINS [Concomitant]
     Active Substance: VITAMINS
  4. OMEGA 3 VITAMIN D3 [Concomitant]
  5. YUVAFEM [Concomitant]
     Active Substance: ESTRADIOL HEMIHYDRATE

REACTIONS (4)
  - Fall [None]
  - Balance disorder [None]
  - Wrist fracture [None]
  - Skin laceration [None]

NARRATIVE: CASE EVENT DATE: 20211115
